FAERS Safety Report 5506294-3 (Version None)
Quarter: 2007Q4

REPORT INFORMATION
  Report Type: 
  Country: None (occurrence: None)
  Receive Date: 20071102
  Receipt Date: 20071102
  Transmission Date: 20080405
  Serious: No
  Sender: FDA-Public Use
  Company Number: None

PATIENT
  Sex: Male
  Weight: 79.3 kg

DRUGS (1)
  1. DASATINIB: [Suspect]
     Indication: GLIOBLASTOMA MULTIFORME
     Dosage: 100MG PO BID TOTAL DOSAGE 5600 MG
     Route: 048
     Dates: start: 20071002, end: 20071030

REACTIONS (5)
  - ALANINE AMINOTRANSFERASE INCREASED [None]
  - ASPARTATE AMINOTRANSFERASE INCREASED [None]
  - BLOOD PHOSPHORUS DECREASED [None]
  - CONDITION AGGRAVATED [None]
  - LYMPHOPENIA [None]
